FAERS Safety Report 21247763 (Version 1)
Quarter: 2022Q3

REPORT INFORMATION
  Report Type: Spontaneous
  Country: US (occurrence: None)
  Receive Date: 20220824
  Receipt Date: 20220824
  Transmission Date: 20221026
  Serious: No
  Sender: FDA-Public Use
  Company Number: US-Emmaus Medical, Inc.-EMM202205-000095

PATIENT
  Age: 67 Year
  Sex: Male
  Weight: 77.11 kg

DRUGS (3)
  1. ENDARI [Suspect]
     Active Substance: GLUTAMINE
     Indication: Sickle cell anaemia with crisis
     Dosage: 5 GM
     Route: 048
     Dates: start: 20220525
  2. HYDROXYUREA [Concomitant]
     Active Substance: HYDROXYUREA
     Indication: Pain
     Dosage: UNKNOWN
     Route: 065
  3. HYDROXYUREA [Concomitant]
     Active Substance: HYDROXYUREA
     Indication: Sickle cell anaemia

REACTIONS (1)
  - Frequent bowel movements [Recovered/Resolved]
